FAERS Safety Report 5679538-5 (Version None)
Quarter: 2008Q1

REPORT INFORMATION
  Report Type: 
  Country: None (occurrence: None)
  Receive Date: 20080325
  Receipt Date: 20080314
  Transmission Date: 20080703
  Serious: Yes (Life-Threatening, Hospitalization)
  Sender: FDA-Public Use
  Company Number: JP-PFIZER INC-2008014151

PATIENT
  Sex: Female

DRUGS (11)
  1. LIPITOR [Suspect]
     Indication: HYPERLIPIDAEMIA
     Route: 048
     Dates: start: 20080111, end: 20080125
  2. FAMOTIDINE [Suspect]
     Indication: ACUTE MYOCARDIAL INFARCTION
     Route: 048
     Dates: start: 20080111, end: 20080125
  3. PANALDINE [Suspect]
     Indication: ACUTE MYOCARDIAL INFARCTION
     Route: 048
     Dates: start: 20080108, end: 20080125
  4. ASPIRIN [Concomitant]
     Indication: ACUTE MYOCARDIAL INFARCTION
     Route: 048
     Dates: start: 20080108, end: 20080125
  5. ARTIST [Concomitant]
     Indication: ACUTE MYOCARDIAL INFARCTION
     Route: 048
     Dates: start: 20080111, end: 20080125
  6. PLETAL [Concomitant]
     Indication: ACUTE MYOCARDIAL INFARCTION
     Route: 048
  7. GLIBENCLAMIDE [Concomitant]
     Dosage: DAILY DOSE:1.25MG
     Route: 048
  8. VOGLIBOSE [Concomitant]
     Dosage: DAILY DOSE:.6MG
     Route: 048
  9. DAONIL [Concomitant]
     Indication: DIABETES MELLITUS
     Route: 048
  10. LAC B [Concomitant]
     Indication: GASTROENTERITIS
     Route: 048
     Dates: start: 20080110, end: 20080117
  11. NEUROVITAN [Concomitant]
     Dosage: TEXT:2 DF
     Route: 048

REACTIONS (1)
  - INTERSTITIAL LUNG DISEASE [None]
